FAERS Safety Report 9201606 (Version 2)
Quarter: 2013Q2

REPORT INFORMATION
  Report Type: Spontaneous
  Country: US (occurrence: US)
  Receive Date: 20130401
  Receipt Date: 20130409
  Transmission Date: 20140414
  Serious: Yes (Death)
  Sender: FDA-Public Use
  Company Number: US-ACTELION-A-NJ2013-81249

PATIENT
  Age: 76 Year
  Sex: Male

DRUGS (15)
  1. TRACLEER [Suspect]
     Indication: PULMONARY ARTERIAL HYPERTENSION
     Dosage: 62.5 MG, BID
     Route: 048
     Dates: start: 20121211, end: 20130310
  2. FLUTICASONE PROPIONATE [Concomitant]
     Dosage: 50 MCG/ACT SUSPENSION
     Route: 045
     Dates: start: 20120927
  3. ABILIFY [Concomitant]
     Dosage: 2 MG, QD
     Route: 048
  4. SEROQUEL [Concomitant]
     Dosage: 25 MG, QD
     Route: 048
  5. ACTOS [Concomitant]
     Dosage: 30 MG, UNK
     Route: 048
  6. FLUOXETINE HCL [Concomitant]
     Dosage: 40 MG, CAPSULE
     Route: 048
  7. BUDEPRION [Concomitant]
     Dosage: 150 MG, Q12HRS
     Route: 048
  8. TAMSULOSIN HCL [Concomitant]
     Dosage: 0.4 MG, CAPSULE
     Route: 048
  9. NIASPAN [Concomitant]
     Dosage: 1000 MG, ER
     Route: 048
  10. LIPITOR [Concomitant]
     Dosage: 20 MG, UNK
     Route: 048
  11. LISINOPRIL [Concomitant]
     Dosage: 2.5 MG, UNK
     Route: 048
  12. ZOLPIDEM [Concomitant]
     Dosage: 5 MG, UNK
     Route: 048
  13. SIMVASTATIN [Concomitant]
     Dosage: 20 MG, UNK
     Route: 048
  14. METFORMIN [Concomitant]
     Dosage: 1000 MG, UNK
     Route: 048
  15. HUMULIN [Concomitant]
     Dosage: (70-30) 100 UNIT/ML SUSPENSION DAILY
     Route: 058

REACTIONS (5)
  - Interstitial lung disease [Fatal]
  - Pulmonary hypertension [Fatal]
  - Renal failure acute [Fatal]
  - Pneumonia [Fatal]
  - Thrombocytopenia [Unknown]
